FAERS Safety Report 5920510-5 (Version None)
Quarter: 2008Q4

REPORT INFORMATION
  Report Type: 
  Country: None (occurrence: None)
  Receive Date: 20081016
  Receipt Date: 20081007
  Transmission Date: 20090506
  Serious: Yes (Death, Hospitalization)
  Sender: FDA-Public Use
  Company Number: B0540545A

PATIENT
  Age: 48 Year
  Sex: Female

DRUGS (7)
  1. NITROGLYCERIN [Suspect]
     Dosage: 1G THREE TIMES PER DAY
     Route: 042
     Dates: start: 20080807, end: 20080816
  2. FLAGYL [Suspect]
     Indication: PSEUDOMEMBRANOUS COLITIS
     Route: 048
     Dates: start: 20080811, end: 20080820
  3. SOLU-MEDROL [Concomitant]
     Indication: MULTIPLE SCLEROSIS
     Dosage: 1G PER DAY
     Route: 042
     Dates: start: 20080729, end: 20080802
  4. TAZOCILLINE [Concomitant]
     Dosage: 4G THREE TIMES PER DAY
     Route: 051
     Dates: start: 20080816, end: 20080819
  5. CIPROFLOXACIN HYDROCHLORIDE [Concomitant]
     Dosage: 200MG TWICE PER DAY
     Route: 065
     Dates: start: 20080816, end: 20080819
  6. VANCOMYCIN HCL [Concomitant]
     Dosage: 2G PER DAY
     Route: 042
     Dates: start: 20080816, end: 20080819
  7. ANTIBIOTICS [Concomitant]
     Dates: start: 20070709

REACTIONS (3)
  - INFECTION [None]
  - PANCYTOPENIA [None]
  - PYREXIA [None]
